FAERS Safety Report 15996558 (Version 3)
Quarter: 2019Q1

REPORT INFORMATION
  Report Type: Spontaneous
  Country: DE (occurrence: DE)
  Receive Date: 20190222
  Receipt Date: 20190314
  Transmission Date: 20190418
  Serious: No
  Sender: FDA-Public Use
  Company Number: DE-009507513-1902DEU006117

PATIENT
  Age: 89 Year
  Sex: Female
  Weight: 43.6 kg

DRUGS (12)
  1. OXAZEPAM. [Interacting]
     Active Substance: OXAZEPAM
     Indication: SLEEP DISORDER
     Dosage: 10 MG, EVERY NIGHT
  2. TORSEMIDE. [Concomitant]
     Active Substance: TORSEMIDE
     Dosage: 10 MG, EVERY MORNING
  3. MIRTAZAPINE. [Suspect]
     Active Substance: MIRTAZAPINE
     Indication: DEPRESSION
     Dosage: 15 MG, EVERY EVENING
     Route: 048
  4. CARVEDILOL. [Concomitant]
     Active Substance: CARVEDILOL
     Dosage: 6.25 MG, EVERY MORNING AND EVENING
  5. DICLOFENAC [Concomitant]
     Active Substance: DICLOFENAC
     Dosage: EXTEND RELEASE 75 MG, EVERY MORNING
  6. DULOXETINE HYDROCHLORIDE. [Interacting]
     Active Substance: DULOXETINE HYDROCHLORIDE
     Indication: DEPRESSION
     Dosage: 30 MG, EVERY MORNING
  7. DIPYRONE [Concomitant]
     Active Substance: DIPYRONE
     Dosage: 500 MG/ML, 30 DROPS AS NEEDED(MAX. 90 DROPS/DAY)
  8. TILIDIN [Interacting]
     Active Substance: NALOXONE HYDROCHLORIDE\TILIDINE HYDROCHLORIDE
     Dosage: 50/4 MG, EVERY MORNING AND EVENING
  9. DIGITOXIN [Concomitant]
     Active Substance: DIGITOXIN
     Dosage: 0.07MG, EVERY MORNING
  10. RAMIPRIL. [Concomitant]
     Active Substance: RAMIPRIL
     Dosage: 5 MG, EVERY MORNING
  11. SPIRONOLACTONE. [Concomitant]
     Active Substance: SPIRONOLACTONE
     Dosage: 50 MG, EVERY MORNING
  12. PANTOPRAZOLE [Concomitant]
     Active Substance: PANTOPRAZOLE
     Dosage: 20 MG, EVERY MORNING

REACTIONS (2)
  - Drug interaction [Unknown]
  - Contraindicated product administered [Unknown]
